FAERS Safety Report 4979259-8 (Version None)
Quarter: 2006Q2

REPORT INFORMATION
  Report Type: 
  Country: None (occurrence: None)
  Receive Date: 20060421
  Receipt Date: 20060411
  Transmission Date: 20061013
  Serious: Yes (Hospitalization)
  Sender: FDA-Public Use
  Company Number: US-BRISTOL-MYERS SQUIBB COMPANY-13343025

PATIENT
  Age: 69 Year
  Sex: Female
  Weight: 86 kg

DRUGS (6)
  1. IXABEPILONE [Suspect]
     Indication: BREAST CANCER
     Route: 042
     Dates: start: 20060222, end: 20060222
  2. CARBOPLATIN [Suspect]
     Indication: BREAST CANCER
     Route: 042
     Dates: start: 20060222, end: 20060222
  3. HERCEPTIN [Suspect]
     Indication: BREAST CANCER
     Route: 042
     Dates: start: 20060222, end: 20060222
  4. DECADRON [Concomitant]
     Indication: PREMEDICATION
     Dates: start: 20060222, end: 20060222
  5. BENADRYL [Concomitant]
     Indication: PREMEDICATION
     Dates: start: 20060222, end: 20060222
  6. ZANTAC [Concomitant]
     Indication: PREMEDICATION
     Dates: start: 20060222, end: 20060222

REACTIONS (5)
  - ENCEPHALOPATHY [None]
  - HYPONATRAEMIA [None]
  - MUSCULAR WEAKNESS [None]
  - NAUSEA [None]
  - VOMITING [None]
